FAERS Safety Report 16134640 (Version 1)
Quarter: 2019Q1

REPORT INFORMATION
  Report Type: Spontaneous
  Country: BW (occurrence: BW)
  Receive Date: 20190329
  Receipt Date: 20190329
  Transmission Date: 20190418
  Serious: Yes (Death)
  Sender: FDA-Public Use
  Company Number: BW-B.I. PHARMACEUTICALS,INC./RIDGEFIELD-2019-BI-006941

PATIENT
  Age: 65 Year
  Sex: Female

DRUGS (3)
  1. DIAGLUCIDE [Concomitant]
     Active Substance: GLICLAZIDE
     Indication: TYPE 2 DIABETES MELLITUS
     Route: 065
  2. JANUMET [Concomitant]
     Active Substance: METFORMIN HYDROCHLORIDE\SITAGLIPTIN PHOSPHATE
     Indication: TYPE 2 DIABETES MELLITUS
     Dosage: DOSE:1000/50
     Route: 065
  3. JARDIANCE [Suspect]
     Active Substance: EMPAGLIFLOZIN
     Indication: TYPE 2 DIABETES MELLITUS
     Route: 065
     Dates: start: 201811

REACTIONS (6)
  - Malaise [Not Recovered/Not Resolved]
  - Renal failure [Unknown]
  - Urinary retention [Unknown]
  - Hypertension [Unknown]
  - Diabetic ulcer [Unknown]
  - Weight decreased [Fatal]
